FAERS Safety Report 18470806 (Version 2)
Quarter: 2020Q4

REPORT INFORMATION
  Report Type: Spontaneous
  Country: US (occurrence: US)
  Receive Date: 20201105
  Receipt Date: 20201125
  Transmission Date: 20210114
  Serious: Yes (Death)
  Sender: FDA-Public Use
  Company Number: US-ROCHE-2706185

PATIENT
  Age: 82 Year
  Sex: Male

DRUGS (1)
  1. ROZLYTREK [Suspect]
     Active Substance: ENTRECTINIB
     Indication: BLADDER CANCER
     Route: 048
     Dates: start: 202009, end: 202010

REACTIONS (3)
  - Intentional product use issue [Unknown]
  - Bladder transitional cell carcinoma stage IV [Fatal]
  - Off label use [Unknown]

NARRATIVE: CASE EVENT DATE: 20201017
